FAERS Safety Report 24084820 (Version 1)
Quarter: 2024Q3

REPORT INFORMATION
  Report Type: Spontaneous
  Country: FR (occurrence: FR)
  Receive Date: 20240712
  Receipt Date: 20240712
  Transmission Date: 20241016
  Serious: Yes (Hospitalization)
  Sender: ORGANON
  Company Number: None

PATIENT
  Age: 42 Year
  Sex: Female
  Weight: 62 kg

DRUGS (5)
  1. MIRTAZAPINE [Suspect]
     Active Substance: MIRTAZAPINE
     Indication: Intentional overdose
     Dosage: 4 DOSAGE FORM, ONCE, (15 MG X 4 CP)
     Route: 048
     Dates: start: 20240610, end: 20240610
  2. ENALAPRIL MALEATE [Suspect]
     Active Substance: ENALAPRIL MALEATE
     Indication: Intentional overdose
     Dosage: 30 DOSAGE FORM, ONCE (20 MG X 30 TABLET)
     Route: 048
     Dates: start: 20240610, end: 20240610
  3. HYDROCHLOROTHIAZIDE [Suspect]
     Active Substance: HYDROCHLOROTHIAZIDE
     Indication: Intentional overdose
     Dosage: 30 DOSAGE FORM, ONCE (2,5 MG X 30 CP)
     Route: 048
     Dates: start: 20240610, end: 20240610
  4. PROPRANOLOL [Suspect]
     Active Substance: PROPRANOLOL HYDROCHLORIDE
     Indication: Intentional overdose
     Dosage: 16 DOSAGE FORM, ONCE, (40 MG X 16 CP)
     Route: 048
     Dates: start: 20240610, end: 20240610
  5. PAROXETINE [Suspect]
     Active Substance: PAROXETINE
     Indication: Intentional overdose
     Dosage: 35 DOSAGE FORM, ONCE (20 MG X 35 CP)
     Route: 048
     Dates: start: 20240610, end: 20240610

REACTIONS (3)
  - Electrocardiogram QT prolonged [Recovered/Resolved]
  - Acute kidney injury [Recovered/Resolved]
  - Poisoning deliberate [Recovered/Resolved]

NARRATIVE: CASE EVENT DATE: 20240610
